FAERS Safety Report 23140544 (Version 3)
Quarter: 2023Q4

REPORT INFORMATION
  Report Type: Spontaneous
  Country: JP (occurrence: JP)
  Receive Date: 20231102
  Receipt Date: 20231219
  Transmission Date: 20240110
  Serious: Yes (Other)
  Sender: FDA-Public Use
  Company Number: JP-GSKJP-JP2023JPN146905

PATIENT
  Age: 62 Year
  Sex: Male

DRUGS (1)
  1. BOTOX [Suspect]
     Active Substance: ONABOTULINUMTOXINA
     Indication: Facial paralysis
     Dosage: TIME INTERVAL: AS NECESSARY: 25-30 IU, INTERVAL OF 8 WEEKS OR MORE, TOTAL OF 10 DOSES
     Route: 030
     Dates: start: 2014

REACTIONS (5)
  - Cryptococcal cutaneous infection [Recovered/Resolved]
  - Injection site indentation [Recovered/Resolved]
  - Injection site erythema [Recovered/Resolved]
  - Injection site oedema [Recovered/Resolved]
  - Injection site pain [Recovered/Resolved]
